FAERS Safety Report 8760167 (Version 1)
Quarter: 2012Q4

REPORT INFORMATION
  Report Type: Spontaneous
  Country: US (occurrence: None)
  Receive Date: 20120828
  Receipt Date: 20120828
  Transmission Date: 20130627
  Serious: No
  Sender: FDA-Public Use
  Company Number: None

PATIENT
  Age: 62 Year
  Sex: Female
  Weight: 98.43 kg

DRUGS (1)
  1. CLOBETASOL PROPIONATE [Suspect]
     Indication: ECZEMA
     Route: 061
     Dates: start: 20120417, end: 20120418

REACTIONS (4)
  - Pain [None]
  - Pruritus [None]
  - Burning sensation [None]
  - Sleep disorder [None]
